FAERS Safety Report 9873857 (Version 2)
Quarter: 2014Q1

REPORT INFORMATION
  Report Type: Spontaneous
  Country: US (occurrence: US)
  Receive Date: 20140206
  Receipt Date: 20140206
  Transmission Date: 20141002
  Serious: No
  Sender: FDA-Public Use
  Company Number: US-ACORDA-ACO_33615_2012

PATIENT
  Age: 55 Year
  Sex: Male
  Weight: 108.39 kg

DRUGS (6)
  1. AMPYRA [Suspect]
     Indication: GAIT DISTURBANCE
     Dosage: 10 MG, BID
     Route: 048
     Dates: start: 201009
  2. BACLOFEN [Concomitant]
     Indication: MUSCLE SPASTICITY
     Dosage: 20 MG, QID
     Route: 048
  3. SERTRALINE [Concomitant]
     Indication: DEPRESSION
     Dosage: 50 MG, QD
     Route: 048
  4. CLONIDINE [Concomitant]
     Indication: MUSCLE SPASTICITY
     Dosage: 0.1 MG, QD NIGHTLY
     Route: 048
  5. TYSABRI [Concomitant]
     Indication: MULTIPLE SCLEROSIS
     Dosage: 300 MG, Q 28 DAYS
     Route: 042
     Dates: start: 2009
  6. VITAMIN D [Concomitant]
     Indication: VITAMIN D DEFICIENCY
     Dosage: 2000 IU, QD
     Route: 048
     Dates: start: 2011

REACTIONS (1)
  - Paraesthesia [Recovered/Resolved]
